FAERS Safety Report 11828095 (Version 1)
Quarter: 2015Q4

REPORT INFORMATION
  Report Type: Spontaneous
  Country: US (occurrence: US)
  Receive Date: 20151211
  Receipt Date: 20151211
  Transmission Date: 20160305
  Serious: No
  Sender: FDA-Public Use
  Company Number: US-BAUSCH-BL-2015-002922

PATIENT
  Sex: Male

DRUGS (1)
  1. XENAZINE [Suspect]
     Active Substance: TETRABENAZINE
     Indication: HUNTINGTON^S DISEASE
     Route: 048
     Dates: start: 20141118

REACTIONS (6)
  - Facial pain [Unknown]
  - Headache [Unknown]
  - Hyperaesthesia [Unknown]
  - Drug ineffective [Unknown]
  - Condition aggravated [Unknown]
  - Pain in extremity [Unknown]
